FAERS Safety Report 11739652 (Version 1)
Quarter: 2015Q4

REPORT INFORMATION
  Report Type: Spontaneous
  Country: BE (occurrence: BE)
  Receive Date: 20151113
  Receipt Date: 20151113
  Transmission Date: 20160304
  Serious: Yes (Other)
  Sender: FDA-Public Use
  Company Number: PHHY2015BE147698

PATIENT
  Age: 63 Year
  Sex: Female

DRUGS (1)
  1. DABRAFENIB [Suspect]
     Active Substance: DABRAFENIB
     Indication: METASTATIC MALIGNANT MELANOMA
     Dosage: UNK
     Route: 065

REACTIONS (5)
  - Hyperkeratosis [Unknown]
  - Skin reaction [Unknown]
  - Skin toxicity [Unknown]
  - Hair texture abnormal [Unknown]
  - Basal cell carcinoma [Unknown]
